FAERS Safety Report 5261804-9 (Version None)
Quarter: 2007Q1

REPORT INFORMATION
  Report Type: 
  Country: None (occurrence: None)
  Receive Date: 20070310
  Receipt Date: 20070228
  Transmission Date: 20070707
  Serious: No
  Sender: FDA-Public Use
  Company Number: 2006UW08146

PATIENT
  Age: 44 Year
  Sex: Male
  Weight: 127.3 kg

DRUGS (4)
  1. SEROQUEL [Suspect]
     Route: 048
  2. HALDOL [Concomitant]
  3. ZYPREXA [Concomitant]
  4. ZOLOFT [Concomitant]

REACTIONS (1)
  - DIABETES MELLITUS [None]
